FAERS Safety Report 19712910 (Version 1)
Quarter: 2021Q3

REPORT INFORMATION
  Report Type: Spontaneous
  Country: GB (occurrence: GB)
  Receive Date: 20210816
  Receipt Date: 20210816
  Transmission Date: 20211014
  Serious: Yes (Hospitalization)
  Sender: FDA-Public Use
  Company Number: NVSC2021GB182570

PATIENT
  Age: 26 Year
  Sex: Female

DRUGS (4)
  1. METRONIDAZOLE. [Concomitant]
     Active Substance: METRONIDAZOLE
     Indication: TOOTHACHE
     Dosage: UNK
     Route: 065
  2. METRONIDAZOLE. [Concomitant]
     Active Substance: METRONIDAZOLE
     Indication: CLOSTRIDIUM DIFFICILE INFECTION
  3. COCODAMOL [Concomitant]
     Active Substance: ACETAMINOPHEN\CODEINE PHOSPHATE
     Indication: TOOTHACHE
     Dosage: UNK
     Route: 065
  4. AMOXICILLIN. [Suspect]
     Active Substance: AMOXICILLIN
     Indication: TOOTHACHE
     Dosage: UNK
     Route: 065

REACTIONS (2)
  - Toxic epidermal necrolysis [Unknown]
  - Product use in unapproved indication [Unknown]
